FAERS Safety Report 14772958 (Version 1)
Quarter: 2018Q2

REPORT INFORMATION
  Report Type: Spontaneous
  Country: US (occurrence: US)
  Receive Date: 20180418
  Receipt Date: 20180418
  Transmission Date: 20180711
  Serious: Yes (Other)
  Sender: FDA-Public Use
  Company Number: US-TEVA-2018-US-880936

PATIENT
  Sex: Female

DRUGS (3)
  1. TEVA CROMOLYN [Suspect]
     Active Substance: CROMOLYN
     Indication: ASTHMA
     Route: 065
     Dates: start: 2015, end: 20180407
  2. CROMOLYN WOODWARD [Suspect]
     Active Substance: CROMOLYN
     Route: 065
     Dates: start: 20180408
  3. PULMICORT TURBUHALER [Suspect]
     Active Substance: BUDESONIDE
     Route: 065

REACTIONS (1)
  - Seizure [Unknown]

NARRATIVE: CASE EVENT DATE: 20180408
